FAERS Safety Report 7707244-1 (Version None)
Quarter: 2011Q3

REPORT INFORMATION
  Report Type: 
  Country: None (occurrence: None)
  Receive Date: 20110824
  Receipt Date: 20110811
  Transmission Date: 20111222
  Serious: Yes (Hospitalization)
  Sender: FDA-Public Use
  Company Number: PHHY2011US44936

PATIENT
  Sex: Female

DRUGS (15)
  1. ALLEGRA [Concomitant]
     Dosage: 60 MG, QID
     Route: 048
  2. PROZAC [Concomitant]
     Dosage: 40 MG, DAILY
     Route: 048
  3. EPIPEN [Concomitant]
     Indication: ANAPHYLACTIC REACTION
     Dosage: 0.3 MG/ML, UNK
  4. BENADRYL [Concomitant]
     Dosage: 100 MG, Q.A.M
     Route: 048
  5. BENADRYL [Concomitant]
     Dosage: 100 MG, Q6H
     Route: 048
  6. TASIGNA [Suspect]
     Indication: SYSTEMIC MASTOCYTOSIS
     Dosage: 150 MG, QD
     Route: 048
     Dates: start: 20110425
  7. ZANTAC [Concomitant]
     Dosage: 50 MG, TID
     Route: 048
  8. REGLAN [Concomitant]
     Indication: NAUSEA
     Dosage: 10 MG, UNK
     Route: 048
  9. TASIGNA [Suspect]
     Dosage: 300 MG, BID
     Route: 048
  10. ZANTAC [Concomitant]
     Dosage: 50 MG, QID
     Route: 048
  11. ALLEGRA [Concomitant]
     Dosage: 60 MG, BID
     Route: 048
  12. REGLAN [Concomitant]
     Indication: VOMITING
  13. BENADRYL [Concomitant]
     Dosage: 150 MG, BED TIME
     Route: 048
  14. ATARAX [Concomitant]
     Dosage: 75 MG, BED TIME
     Route: 048
  15. SOLU-MEDROL [Concomitant]

REACTIONS (20)
  - INFLUENZA LIKE ILLNESS [None]
  - COUGH [None]
  - PANCREATITIS [None]
  - CHOLECYSTITIS [None]
  - NAUSEA [None]
  - CHOLELITHIASIS [None]
  - URTICARIA [None]
  - INFECTION [None]
  - ABDOMINAL DISTENSION [None]
  - OROPHARYNGEAL PAIN [None]
  - FLUID RETENTION [None]
  - GALLBLADDER DISORDER [None]
  - ABDOMINAL PAIN [None]
  - NASAL CONGESTION [None]
  - FATIGUE [None]
  - SINUSITIS [None]
  - FACIAL PAIN [None]
  - CHILLS [None]
  - NASOPHARYNGITIS [None]
  - WEIGHT INCREASED [None]
